FAERS Safety Report 24902258 (Version 1)
Quarter: 2025Q1

REPORT INFORMATION
  Report Type: Other
  Country: DE (occurrence: DE)
  Receive Date: 20250130
  Receipt Date: 20250130
  Transmission Date: 20250408
  Serious: Yes (Other)
  Sender: WAYLIS THERAPEUTICS LLC
  Company Number: DE-WT-2025-39418614P4

PATIENT
  Age: 17 Year
  Sex: Female

DRUGS (12)
  1. BUSULFAN [Suspect]
     Active Substance: BUSULFAN
     Route: 042
  2. ZYNTEGLO [Concomitant]
     Active Substance: BETIBEGLOGENE AUTOTEMCEL
     Route: 042
  3. DEFERASIROX [Concomitant]
     Active Substance: DEFERASIROX
     Route: 065
  4. DEFERIPRONE [Concomitant]
     Active Substance: DEFERIPRONE
     Route: 065
  5. CLONAZEPAM [Concomitant]
     Active Substance: CLONAZEPAM
     Route: 065
  6. HEPARIN [Concomitant]
     Active Substance: HEPARIN SODIUM
     Route: 065
  7. URSODIOL [Concomitant]
     Active Substance: URSODIOL
     Route: 065
  8. AMPHOTERICIN B [Concomitant]
     Active Substance: AMPHOTERICIN B
     Route: 065
  9. ACYCLOVIR [Concomitant]
     Active Substance: ACYCLOVIR
     Route: 065
  10. FLUCONAZOLE [Concomitant]
     Active Substance: FLUCONAZOLE
     Route: 065
  11. COTRIMOXAZOLE [Concomitant]
     Active Substance: SULFAMETHOXAZOLE\TRIMETHOPRIM
     Route: 065
  12. URSODIOL [Concomitant]
     Active Substance: URSODIOL
     Route: 065

REACTIONS (2)
  - Primary hypogonadism [Unknown]
  - Pituitary amenorrhoea [Unknown]
